FAERS Safety Report 9924755 (Version 3)
Quarter: 2014Q1

REPORT INFORMATION
  Report Type: Report from Study
  Country: IT (occurrence: IT)
  Receive Date: 20140226
  Receipt Date: 20140326
  Transmission Date: 20141002
  Serious: Yes (Hospitalization, Other)
  Sender: FDA-Public Use
  Company Number: IT-ROCHE-1212923

PATIENT
  Age: 66 Year
  Sex: Female

DRUGS (61)
  1. PERTUZUMAB [Suspect]
     Indication: BREAST CANCER
     Dosage: LOADING DOSE
     Route: 042
     Dates: start: 20130225, end: 20130225
  2. PERTUZUMAB [Suspect]
     Dosage: MAINTENANCE DOSE, DATE OF LAST DOSE PRIOR TO SAE 25/MAR/2013
     Route: 042
     Dates: start: 20130325
  3. TRASTUZUMAB [Suspect]
     Indication: BREAST CANCER
     Dosage: LOADING DOSE
     Route: 042
     Dates: start: 20130225, end: 20130225
  4. TRASTUZUMAB [Suspect]
     Dosage: MAINTENANCE DOSE, DATE OF LAST DOSE PRIOR TO SAE 25/MAR/2013
     Route: 042
  5. PACLITAXEL [Suspect]
     Indication: BREAST CANCER
     Dosage: DATE OF LAST DOSE PRIOR TO SAE 25/MAR/2013
     Route: 042
     Dates: start: 20130225
  6. FLEBOCORTID [Concomitant]
     Indication: PROPHYLACTIC CHEMOTHERAPY
     Route: 065
     Dates: start: 20130225, end: 20130225
  7. FLEBOCORTID [Concomitant]
     Dosage: 1 VIAL
     Route: 065
     Dates: start: 20130318, end: 20130318
  8. FLEBOCORTID [Concomitant]
     Route: 065
     Dates: start: 20130325, end: 20130325
  9. FLEBOCORTID [Concomitant]
     Route: 065
     Dates: start: 20130415, end: 20130415
  10. FLEBOCORTID [Concomitant]
     Route: 065
     Dates: start: 20130506, end: 20130506
  11. FLEBOCORTID [Concomitant]
     Route: 065
     Dates: start: 20130527, end: 20130527
  12. RANIDIL [Concomitant]
     Indication: PROPHYLACTIC CHEMOTHERAPY
     Route: 065
     Dates: start: 20130225, end: 20130225
  13. RANIDIL [Concomitant]
     Dosage: 2 VIALS
     Route: 065
     Dates: start: 20130304, end: 20130304
  14. RANIDIL [Concomitant]
     Dosage: 2 VIALS
     Route: 065
     Dates: start: 20130318, end: 20130318
  15. RANIDIL [Concomitant]
     Dosage: 2 VIALS
     Route: 065
     Dates: start: 20130325, end: 20130325
  16. RANIDIL [Concomitant]
     Dosage: 2 VIALS
     Route: 065
     Dates: start: 20130408, end: 20130408
  17. RANIDIL [Concomitant]
     Dosage: 2 VIAL
     Route: 065
     Dates: start: 20130415, end: 20130415
  18. RANIDIL [Concomitant]
     Dosage: 2 VIALS
     Route: 065
     Dates: start: 20130506, end: 20130506
  19. RANIDIL [Concomitant]
     Dosage: 2 VIALS
     Route: 065
     Dates: start: 20130513, end: 20130513
  20. RANIDIL [Concomitant]
     Dosage: 2 VIALS
     Route: 065
     Dates: start: 20130527, end: 20130527
  21. RANIDIL [Concomitant]
     Dosage: 2 VIALS
     Route: 065
     Dates: start: 20130603, end: 20130603
  22. RANIDIL [Concomitant]
     Dosage: 2 VIALS
     Route: 065
     Dates: start: 20130617, end: 20130617
  23. DEXAMETHASONE [Concomitant]
     Indication: PROPHYLACTIC CHEMOTHERAPY
     Route: 065
     Dates: start: 20130225, end: 20130225
  24. DEXAMETHASONE [Concomitant]
     Route: 065
     Dates: start: 20130318, end: 20130318
  25. DEXAMETHASONE [Concomitant]
     Route: 065
     Dates: start: 20130325, end: 20130325
  26. DEXAMETHASONE [Concomitant]
     Route: 065
     Dates: start: 20130408, end: 20130408
  27. DEXAMETHASONE [Concomitant]
     Route: 065
     Dates: start: 20130415, end: 20130415
  28. DEXAMETHASONE [Concomitant]
     Route: 065
     Dates: start: 20130506, end: 20130506
  29. DEXAMETHASONE [Concomitant]
     Route: 065
     Dates: start: 20130513, end: 20130513
  30. DEXAMETHASONE [Concomitant]
     Route: 065
     Dates: start: 20130520, end: 20130520
  31. DEXAMETHASONE [Concomitant]
     Route: 065
     Dates: start: 20130527, end: 20130527
  32. DEXAMETHASONE [Concomitant]
     Route: 065
     Dates: start: 20130603, end: 20130603
  33. DEXAMETHASONE [Concomitant]
     Route: 065
     Dates: start: 20130617, end: 20130617
  34. TRIMETON (ITALY) [Concomitant]
     Indication: PROPHYLACTIC CHEMOTHERAPY
     Dosage: 1 VIAL
     Route: 065
     Dates: start: 20130225, end: 20130225
  35. TRIMETON (ITALY) [Concomitant]
     Dosage: 1 VIAL
     Route: 065
     Dates: start: 20130318, end: 20130318
  36. TRIMETON (ITALY) [Concomitant]
     Dosage: 1 VIAL
     Route: 065
     Dates: start: 20130325, end: 20130325
  37. TRIMETON (ITALY) [Concomitant]
     Dosage: 1 VIAL
     Route: 065
     Dates: start: 20130408, end: 20130408
  38. TRIMETON (ITALY) [Concomitant]
     Dosage: 1 VIAL
     Route: 065
     Dates: start: 20130415, end: 20130415
  39. TRIMETON (ITALY) [Concomitant]
     Dosage: 1 VIAL
     Route: 065
     Dates: start: 20130506, end: 20130506
  40. TRIMETON (ITALY) [Concomitant]
     Dosage: 1 VIAL
     Route: 065
     Dates: start: 20130513, end: 20130513
  41. TRIMETON (ITALY) [Concomitant]
     Dosage: 1 VIAL
     Route: 065
     Dates: start: 20130520, end: 20130520
  42. TRIMETON (ITALY) [Concomitant]
     Dosage: 1 VIAL
     Route: 065
     Dates: start: 20130527, end: 20130527
  43. TRIMETON (ITALY) [Concomitant]
     Dosage: 1 VIAL
     Route: 065
     Dates: start: 20130603, end: 20130603
  44. ZOFRAN [Concomitant]
     Indication: PROPHYLACTIC CHEMOTHERAPY
     Dosage: 1 VIAL
     Route: 065
     Dates: start: 20130304, end: 20130304
  45. ZOFRAN [Concomitant]
     Dosage: 1 VIAL
     Route: 065
     Dates: start: 20130408, end: 20130408
  46. ZOFRAN [Concomitant]
     Dosage: 1 VIAL
     Route: 065
     Dates: start: 20130506, end: 20130506
  47. ZOFRAN [Concomitant]
     Dosage: 1 VIAL
     Route: 065
     Dates: start: 20130520, end: 20130520
  48. ZOFRAN [Concomitant]
     Dosage: 1 VIAL
     Route: 065
     Dates: start: 20130603, end: 20130603
  49. ZOFRAN [Concomitant]
     Dosage: 1 VIAL
     Route: 065
     Dates: start: 20130617, end: 20130617
  50. ZOFRAN [Concomitant]
     Dosage: 1 VIAL
     Route: 065
     Dates: start: 20130318, end: 20130318
  51. ZOFRAN [Concomitant]
     Dosage: 1 VIAL
     Route: 065
     Dates: start: 20130325, end: 20130325
  52. ZOFRAN [Concomitant]
     Dosage: 1 VIAL
     Route: 065
     Dates: start: 20130415, end: 20130415
  53. ZOFRAN [Concomitant]
     Dosage: 1 VIAL
     Route: 065
     Dates: start: 20130527, end: 20130527
  54. SOLU-CORTEF [Concomitant]
     Indication: PROPHYLACTIC CHEMOTHERAPY
     Route: 065
     Dates: start: 20130304, end: 20130304
  55. SOLU-CORTEF [Concomitant]
     Route: 065
     Dates: start: 20130408, end: 20130408
  56. SOLU-CORTEF [Concomitant]
     Route: 065
     Dates: start: 20130513, end: 20130513
  57. SOLU-CORTEF [Concomitant]
     Route: 065
     Dates: start: 20130520, end: 20130520
  58. SOLU-CORTEF [Concomitant]
     Route: 065
     Dates: start: 20130603, end: 20130603
  59. SOLU-CORTEF [Concomitant]
     Route: 065
     Dates: start: 20130617, end: 20130617
  60. FERLIXIT [Concomitant]
     Indication: PROPHYLACTIC CHEMOTHERAPY
     Dosage: 2 VIALS
     Route: 065
     Dates: start: 20130408
  61. GLUTATHIONE [Concomitant]
     Dosage: 2 VIALS
     Route: 065
     Dates: start: 20130603, end: 20130603

REACTIONS (2)
  - Diarrhoea [Recovered/Resolved]
  - Rectal haemorrhage [Recovered/Resolved]
